FAERS Safety Report 6531593-6 (Version None)
Quarter: 2010Q1

REPORT INFORMATION
  Report Type: 
  Country: None (occurrence: None)
  Receive Date: 20100108
  Receipt Date: 20090928
  Transmission Date: 20100710
  Serious: No
  Sender: FDA-Public Use
  Company Number: A0829430A

PATIENT
  Age: 75 Year
  Sex: Female
  Weight: 74 kg

DRUGS (4)
  1. EXTINA [Suspect]
     Indication: RASH
     Dosage: 2PCT TWICE PER DAY
     Route: 061
     Dates: start: 20090923
  2. ATENOLOL [Concomitant]
     Route: 048
  3. HYDROCHLOROTHIAZIDE [Concomitant]
     Route: 048
  4. ZOCOR [Concomitant]
     Indication: BLOOD CHOLESTEROL INCREASED
     Route: 048

REACTIONS (3)
  - APPLICATION SITE PAIN [None]
  - APPLICATION SITE WARMTH [None]
  - OFF LABEL USE [None]
